FAERS Safety Report 24816712 (Version 1)
Quarter: 2025Q1

REPORT INFORMATION
  Report Type: Spontaneous
  Country: PT (occurrence: PT)
  Receive Date: 20250107
  Receipt Date: 20250107
  Transmission Date: 20250409
  Serious: Yes (Hospitalization)
  Sender: BOEHRINGER INGELHEIM
  Company Number: PT-BoehringerIngelheim-2024-BI-068722

PATIENT
  Age: 72 Year
  Sex: Female

DRUGS (17)
  1. NINTEDANIB [Suspect]
     Active Substance: NINTEDANIB
     Indication: Interstitial lung disease
     Dates: start: 202412
  2. NINTEDANIB [Suspect]
     Active Substance: NINTEDANIB
     Dates: start: 20240806, end: 202412
  3. NINTEDANIB [Suspect]
     Active Substance: NINTEDANIB
     Dates: start: 202412
  4. MYCOPHENOLATE MOFETIL [Concomitant]
     Active Substance: MYCOPHENOLATE MOFETIL
     Indication: Hypersensitivity pneumonitis
     Dates: start: 202404, end: 20240806
  5. MYCOPHENOLATE MOFETIL [Concomitant]
     Active Substance: MYCOPHENOLATE MOFETIL
     Dates: start: 20240812, end: 20240818
  6. MYCOPHENOLATE MOFETIL [Concomitant]
     Active Substance: MYCOPHENOLATE MOFETIL
     Dates: start: 20240806, end: 20240812
  7. Pravafenix (pravastatin/fenofibrate) [Concomitant]
     Indication: Product used for unknown indication
     Dosage: 1 TABLET DINNER
  8. Calcitab [Concomitant]
     Indication: Product used for unknown indication
     Dosage: 1 TABLET DINNER
  9. Telmisartan + hydrochlorothiazide 80+12.5 [Concomitant]
     Indication: Product used for unknown indication
     Dosage: 1 TABLET FASTING? 80+12.5
  10. ESCITALOPRAM OXALATE [Concomitant]
     Active Substance: ESCITALOPRAM OXALATE
     Indication: Product used for unknown indication
     Dosage: 1 TABLET BREAKFAST
  11. ESOMEPRAZOLE SODIUM [Concomitant]
     Active Substance: ESOMEPRAZOLE SODIUM
     Indication: Product used for unknown indication
     Dosage: 1 TABLET FASTING
  12. Furosemide 40 [Concomitant]
     Indication: Product used for unknown indication
     Dosage: 1 TABLET BREAKFAST
  13. COTRIMOXAZOLE [Concomitant]
     Active Substance: SULFAMETHOXAZOLE\TRIMETHOPRIM
     Indication: Product used for unknown indication
     Dosage: 1 TABLET
  14. PREDNISOLONE [Concomitant]
     Active Substance: PREDNISOLONE
     Indication: Product used for unknown indication
  15. PREDNISOLONE [Concomitant]
     Active Substance: PREDNISOLONE
  16. Alendronic Acid + cholecalciferol 70+5600UI [Concomitant]
     Indication: Product used for unknown indication
     Dosage: 70+5600UI
  17. Ferrinjet [Concomitant]
     Indication: Product used for unknown indication

REACTIONS (6)
  - Wound dehiscence [Unknown]
  - Respiratory disorder [Unknown]
  - Decreased appetite [Unknown]
  - Weight decreased [Unknown]
  - Nausea [Unknown]
  - Vomiting [Unknown]
